FAERS Safety Report 5151055-0 (Version None)
Quarter: 2006Q4

REPORT INFORMATION
  Report Type: 
  Country: None (occurrence: None)
  Receive Date: 20061114
  Receipt Date: 20061114
  Transmission Date: 20070319
  Serious: Yes (Hospitalization)
  Sender: FDA-Public Use
  Company Number: None

PATIENT
  Sex: Male
  Weight: 80.5 kg

DRUGS (2)
  1. CISPLATIN [Suspect]
     Dosage: 267 MG
  2. TAXOL [Suspect]
     Dosage: 393 MG

REACTIONS (2)
  - DIARRHOEA [None]
  - NEUTROPENIA [None]
